FAERS Safety Report 9164167 (Version 4)
Quarter: 2014Q4

REPORT INFORMATION
  Report Type: Spontaneous
  Country: GB (occurrence: GB)
  Receive Date: 20130315
  Receipt Date: 20141218
  Transmission Date: 20150529
  Serious: Yes (Other)
  Sender: FDA-Public Use
  Company Number: GB-BIOGENIDEC-2012BI018256

PATIENT
  Age: 31 Year
  Sex: Female
  Weight: 70 kg

DRUGS (3)
  1. VENLAFAXINE [Concomitant]
     Active Substance: VENLAFAXINE HYDROCHLORIDE
  2. TYSABRI [Suspect]
     Active Substance: NATALIZUMAB
     Indication: MULTIPLE SCLEROSIS
     Route: 042
     Dates: start: 201003, end: 20120511
  3. ZOLPIDEM [Concomitant]
     Active Substance: ZOLPIDEM\ZOLPIDEM TARTRATE
     Indication: INSOMNIA
     Dates: end: 20120519

REACTIONS (4)
  - Oligohydramnios [Unknown]
  - Urinary tract obstruction [Unknown]
  - Breech presentation [Unknown]
  - Ureteric dilatation [Unknown]

NARRATIVE: CASE EVENT DATE: 20120907
